FAERS Safety Report 4875949-6 (Version None)
Quarter: 2005Q4

REPORT INFORMATION
  Report Type: 
  Country: None (occurrence: None)
  Receive Date: 20051205
  Receipt Date: 20051103
  Transmission Date: 20060501
  Serious: No
  Sender: FDA-Public Use
  Company Number: USA0510112041

PATIENT
  Sex: Male

DRUGS (3)
  1. ALIMTA [Suspect]
     Indication: BRONCHIAL CARCINOMA
     Dates: start: 20051005
  2. VITAMIN B-12 [Concomitant]
  3. CENTRUM SILVER [Concomitant]

REACTIONS (1)
  - BLOOD ALBUMIN DECREASED [None]
